FAERS Safety Report 7807967-X (Version None)
Quarter: 2011Q4

REPORT INFORMATION
  Report Type: 
  Country: None (occurrence: None)
  Receive Date: 20111011
  Receipt Date: 20111011
  Transmission Date: 20120403
  Serious: No
  Sender: FDA-Public Use
  Company Number: None

PATIENT
  Age: 50 Year
  Sex: Female
  Weight: 58.059 kg

DRUGS (1)
  1. MACROBID [Suspect]

REACTIONS (3)
  - LOSS OF CONSCIOUSNESS [None]
  - RENAL FAILURE [None]
  - DRUG HYPERSENSITIVITY [None]
